FAERS Safety Report 7551916-9 (Version None)
Quarter: 2011Q2

REPORT INFORMATION
  Report Type: 
  Country: None (occurrence: None)
  Receive Date: 20110616
  Receipt Date: 20110603
  Transmission Date: 20111010
  Serious: Yes (Other)
  Sender: FDA-Public Use
  Company Number: US-BAYER-201022793NA

PATIENT
  Age: 32 Year
  Sex: Female
  Weight: 42.177 kg

DRUGS (5)
  1. MOTRIN [Concomitant]
     Dosage: 2 DF, QD
     Dates: start: 20060101, end: 20080101
  2. YAZ [Suspect]
     Indication: PREMENSTRUAL SYNDROME
  3. MULTI-VITAMINS [Concomitant]
  4. YAZ [Suspect]
     Indication: CONTRACEPTION
     Dosage: 1 DF, QD
     Route: 048
     Dates: start: 20070901, end: 20090901
  5. YAZ [Suspect]
     Indication: ACNE

REACTIONS (5)
  - FEELING ABNORMAL [None]
  - CHOLECYSTITIS [None]
  - ABDOMINAL PAIN UPPER [None]
  - CHOLELITHIASIS [None]
  - HEADACHE [None]
